FAERS Safety Report 9575293 (Version 2)
Quarter: 2013Q4

REPORT INFORMATION
  Report Type: Spontaneous
  Country: US (occurrence: US)
  Receive Date: 20131001
  Receipt Date: 20131021
  Transmission Date: 20140711
  Serious: Yes (Death, Hospitalization, Other)
  Sender: FDA-Public Use
  Company Number: US-GILEAD-2013-0084495

PATIENT
  Age: 58 Year
  Sex: Female

DRUGS (25)
  1. LETAIRIS [Suspect]
     Indication: PRODUCT USED FOR UNKNOWN INDICATION
     Dosage: 5 MG, QD
     Route: 048
     Dates: start: 20080327
  2. TADALAFIL [Concomitant]
  3. CRESTOR [Concomitant]
     Dosage: 20 UNK, UNK
  4. EPITOL [Concomitant]
     Dosage: 200 UNK, UNK
  5. KLOR-CON [Concomitant]
     Dosage: 10 UNK, UNK
  6. LANTUS [Concomitant]
  7. NOVOLOG [Concomitant]
  8. FOLIC ACID [Concomitant]
     Dosage: 1 UNK, UNK
  9. FUROSEMIDE [Concomitant]
     Dosage: 40 UNK, UNK
  10. LEVOTHYROXINE [Concomitant]
     Dosage: 100 UNK, UNK
  11. VENLAFAXINE [Concomitant]
     Dosage: 150 UNK, UNK
  12. DUONEB [Concomitant]
  13. ISORDIL [Concomitant]
     Dosage: 10 UNK, UNK
  14. PROTONIX [Concomitant]
     Dosage: 40 UNK, UNK
  15. VERSED [Concomitant]
  16. ZOFRAN                             /00955301/ [Concomitant]
     Dosage: 8 UNK, UNK
  17. CLONIDINE [Concomitant]
     Dosage: 0.1 UNK, UNK
  18. LACTULOSE [Concomitant]
     Dosage: 20 UNK, UNK
  19. METOLAZONE [Concomitant]
     Dosage: 5 UNK, UNK
  20. MIDAZOLAM [Concomitant]
  21. PANTOPRAZOLE [Concomitant]
     Dosage: 40 UNK, UNK
  22. PNEUMOCOCCAL VACCINE [Concomitant]
  23. SODIUM BICARBONATE [Concomitant]
  24. ALBUTEROL W/IPRATROPIUM [Concomitant]
  25. ONDANSETRON [Concomitant]

REACTIONS (2)
  - Cardiac arrest [Fatal]
  - Acute respiratory failure [Unknown]
